FAERS Safety Report 15947737 (Version 2)
Quarter: 2019Q1

REPORT INFORMATION
  Report Type: Report from Study
  Country: US (occurrence: US)
  Receive Date: 20190211
  Receipt Date: 20190222
  Transmission Date: 20190417
  Serious: Yes (Other)
  Sender: FDA-Public Use
  Company Number: US-ACTELION-A-US2019-185915

PATIENT
  Age: 58 Year
  Sex: Female
  Weight: 73.16 kg

DRUGS (3)
  1. SILDENAFIL CITRATE. [Concomitant]
     Active Substance: SILDENAFIL CITRATE
     Dosage: UNK
  2. OXYGEN. [Concomitant]
     Active Substance: OXYGEN
  3. OPSUMIT [Suspect]
     Active Substance: MACITENTAN
     Indication: PULMONARY ARTERIAL HYPERTENSION
     Dosage: 10 MG, QD
     Route: 048

REACTIONS (5)
  - Upper limb fracture [Recovering/Resolving]
  - Pneumonia [Unknown]
  - Syncope [Unknown]
  - Pleurisy [Unknown]
  - Asthenia [Unknown]

NARRATIVE: CASE EVENT DATE: 20190126
